FAERS Safety Report 16320413 (Version 1)
Quarter: 2019Q2

REPORT INFORMATION
  Report Type: Spontaneous
  Country: FR (occurrence: FR)
  Receive Date: 20190516
  Receipt Date: 20190516
  Transmission Date: 20190711
  Serious: Yes (Death, Congenital Anomaly)
  Sender: FDA-Public Use
  Company Number: FR-MYLANLABS-2019M1045610

PATIENT
  Age: 23 Week

DRUGS (1)
  1. ACICLOVIR [Suspect]
     Active Substance: ACYCLOVIR
     Indication: EXPOSURE TO COMMUNICABLE DISEASE
     Dosage: POSOLOGIE INCONNUE
     Route: 064
     Dates: start: 20180130, end: 20180201

REACTIONS (2)
  - Spina bifida [Fatal]
  - Foetal exposure during pregnancy [Recovered/Resolved]
